FAERS Safety Report 17279781 (Version 1)
Quarter: 2020Q1

REPORT INFORMATION
  Report Type: Spontaneous
  Country: US (occurrence: US)
  Receive Date: 20200116
  Receipt Date: 20200116
  Transmission Date: 20200409
  Serious: No
  Sender: FDA-Public Use
  Company Number: NVSC2020US008032

PATIENT
  Age: 34 Year
  Sex: Female

DRUGS (1)
  1. HYDROXYCHLOROQUINE [Suspect]
     Active Substance: HYDROXYCHLOROQUINE
     Indication: PLEURITIC PAIN
     Dosage: UNK
     Route: 065

REACTIONS (2)
  - Neuropsychiatric symptoms [Unknown]
  - Product use in unapproved indication [Unknown]
